FAERS Safety Report 24205705 (Version 1)
Quarter: 2024Q3

REPORT INFORMATION
  Report Type: Spontaneous
  Country: CN (occurrence: CN)
  Receive Date: 20240813
  Receipt Date: 20240813
  Transmission Date: 20241016
  Serious: Yes (Hospitalization)
  Sender: NOVARTIS
  Company Number: CN-002147023-NVSC2024CN164096

PATIENT
  Age: 37 Year
  Sex: Male

DRUGS (1)
  1. SECUKINUMAB [Suspect]
     Active Substance: SECUKINUMAB
     Indication: Ankylosing spondylitis
     Dosage: 300.000 MG, WEEK FOR TOTAL 5 TIMES ON 08 APR 2024, AND THEN CHANGED TO ONCE EVERY
     Route: 058
     Dates: start: 20240408

REACTIONS (2)
  - Rash pustular [Recovering/Resolving]
  - Impetigo [Recovering/Resolving]

NARRATIVE: CASE EVENT DATE: 20240618
